FAERS Safety Report 10065124 (Version 1)
Quarter: 2014Q2

REPORT INFORMATION
  Report Type: Spontaneous
  Country: HR (occurrence: HR)
  Receive Date: 20140408
  Receipt Date: 20140408
  Transmission Date: 20141212
  Serious: Yes (Other)
  Sender: FDA-Public Use
  Company Number: PHHY2014HR039150

PATIENT
  Age: 75 Year
  Sex: Male

DRUGS (4)
  1. FLEXID SANDOZ [Suspect]
     Indication: PROSTATITIS
     Route: 048
     Dates: start: 20140212, end: 20140303
  2. AMLOPIN [Concomitant]
     Indication: ESSENTIAL HYPERTENSION
     Route: 048
     Dates: start: 20131212
  3. TYREZ [Concomitant]
     Indication: VENTRICULAR FIBRILLATION
     Route: 048
     Dates: start: 20131212
  4. TAMOSIN [Concomitant]
     Indication: BENIGN PROSTATIC HYPERPLASIA
     Route: 048
     Dates: start: 20140212

REACTIONS (4)
  - Haematoma [Recovered/Resolved]
  - Joint swelling [Recovered/Resolved]
  - Extravasation blood [Recovered/Resolved]
  - Muscle spasms [Recovered/Resolved]
